FAERS Safety Report 15565813 (Version 1)
Quarter: 2018Q4

REPORT INFORMATION
  Report Type: Spontaneous
  Country: US (occurrence: US)
  Receive Date: 20181030
  Receipt Date: 20181030
  Transmission Date: 20190205
  Serious: Yes (Other)
  Sender: FDA-Public Use
  Company Number: US-VIIV HEALTHCARE LIMITED-US2018GSK194035

PATIENT
  Sex: Male

DRUGS (1)
  1. COMBIVIR [Suspect]
     Active Substance: LAMIVUDINE\ZIDOVUDINE
     Indication: HIV INFECTION

REACTIONS (4)
  - Decubitus ulcer [Unknown]
  - Rectal lesion [Unknown]
  - Paraplegia [Unknown]
  - Gait inability [Unknown]
